FAERS Safety Report 7243194-5 (Version None)
Quarter: 2011Q1

REPORT INFORMATION
  Report Type: 
  Country: None (occurrence: None)
  Receive Date: 20110125
  Receipt Date: 20110118
  Transmission Date: 20110831
  Serious: Yes (Other)
  Sender: FDA-Public Use
  Company Number: US-ROCHE-428729

PATIENT
  Sex: Female
  Weight: 107 kg

DRUGS (5)
  1. PEGASYS [Suspect]
     Indication: HEPATITIS C
     Route: 058
     Dates: start: 20050224, end: 20050405
  2. COLCHICINE [Concomitant]
     Indication: JOINT STIFFNESS
     Route: 048
  3. PEGASYS [Suspect]
     Route: 058
     Dates: start: 20060101
  4. RIBAVARIN [Suspect]
     Indication: HEPATITIS C
     Route: 048
     Dates: start: 20050224, end: 20050405
  5. INTERFERON ALFA [Suspect]
     Indication: HEPATITIS C
     Route: 065
     Dates: start: 20060101

REACTIONS (9)
  - HYPERTENSION [None]
  - SKIN DEPIGMENTATION [None]
  - INJECTION SITE REACTION [None]
  - FATIGUE [None]
  - MITRAL VALVE INCOMPETENCE [None]
  - CHEST PAIN [None]
  - DECREASED APPETITE [None]
  - ADVERSE DRUG REACTION [None]
  - VOMITING [None]
